FAERS Safety Report 6013478-7 (Version None)
Quarter: 2008Q4

REPORT INFORMATION
  Report Type: 
  Country: None (occurrence: None)
  Receive Date: 20081219
  Receipt Date: 20081209
  Transmission Date: 20090506
  Serious: Yes (Other)
  Sender: FDA-Public Use
  Company Number: US-JNJFOC-20080106498

PATIENT
  Sex: Female
  Weight: 81.65 kg

DRUGS (18)
  1. REMICADE [Suspect]
     Route: 042
  2. REMICADE [Suspect]
     Route: 042
  3. REMICADE [Suspect]
     Route: 042
  4. REMICADE [Suspect]
     Route: 042
  5. REMICADE [Suspect]
     Route: 042
  6. REMICADE [Suspect]
     Indication: RHEUMATOID ARTHRITIS
     Route: 042
  7. TRIAN. [Concomitant]
     Indication: DIURETIC THERAPY
     Dosage: 37.5/25
  8. METHOTREXATE [Concomitant]
     Indication: RHEUMATOID ARTHRITIS
  9. PREDNISONE TAB [Concomitant]
     Indication: RHEUMATOID ARTHRITIS
  10. LISINOPRIL [Concomitant]
     Indication: BLOOD PRESSURE
  11. ATENOLOL [Concomitant]
     Indication: HYPERTENSION
  12. FOLIC ACID [Concomitant]
     Indication: RHEUMATOID ARTHRITIS
  13. LUNESTA [Concomitant]
     Indication: HYPERSOMNIA
  14. LYRICA [Concomitant]
     Indication: NERVE INJURY
     Dosage: 75 MG WHEN RECEIVED
  15. VICADIN ES [Concomitant]
     Indication: PAIN
     Dosage: 4 NEEDED
  16. BENADRYL [Concomitant]
     Indication: PREMEDICATION
  17. LEXAPRO [Concomitant]
     Indication: DEPRESSION
  18. LORTAB [Concomitant]
     Indication: RHEUMATOID ARTHRITIS

REACTIONS (4)
  - BACK PAIN [None]
  - INFUSION RELATED REACTION [None]
  - INTERVERTEBRAL DISC PROTRUSION [None]
  - OSTEOPENIA [None]
